FAERS Safety Report 7601537-4 (Version None)
Quarter: 2011Q3

REPORT INFORMATION
  Report Type: 
  Country: None (occurrence: None)
  Receive Date: 20110711
  Receipt Date: 20110627
  Transmission Date: 20111222
  Serious: Yes (Hospitalization)
  Sender: FDA-Public Use
  Company Number: PHHY2011US41343

PATIENT
  Sex: Female
  Weight: 120 kg

DRUGS (12)
  1. FISH OIL [Concomitant]
     Dosage: 1000 MG, UNK
  2. LISINOPRIL [Concomitant]
  3. VALTURNA [Suspect]
     Indication: HYPERTENSION
     Dosage: 1 DF, QD
     Route: 048
     Dates: start: 20100209, end: 20110407
  4. ZOLOFT [Concomitant]
  5. ASPIRIN [Concomitant]
  6. VITAMIN E [Concomitant]
  7. CALCIUM D [Concomitant]
  8. NEBULIZER [Concomitant]
  9. CINNAMON [Concomitant]
  10. ASCORBIC ACID [Concomitant]
  11. DIOVAN HCT [Suspect]
     Dosage: 1 DF, QD
  12. VITAMIN B-12 [Concomitant]

REACTIONS (5)
  - HYPERTENSION [None]
  - OXYGEN CONSUMPTION DECREASED [None]
  - CHRONIC OBSTRUCTIVE PULMONARY DISEASE [None]
  - OEDEMA PERIPHERAL [None]
  - PNEUMONIA [None]
